FAERS Safety Report 4815665-X (Version None)
Quarter: 2005Q4

REPORT INFORMATION
  Report Type: 
  Country: None (occurrence: None)
  Receive Date: 20051027
  Receipt Date: 20051017
  Transmission Date: 20060501
  Serious: Yes (Hospitalization)
  Sender: FDA-Public Use
  Company Number: 2005143944

PATIENT
  Age: 30 Year
  Sex: Female

DRUGS (6)
  1. SOLU-MEDROL [Suspect]
     Indication: ILL-DEFINED DISORDER
     Dosage: 40 MG, INTRAVENOUS
     Route: 042
     Dates: start: 20050902, end: 20050902
  2. ULTRAVIST 370 [Suspect]
     Indication: COMPUTERISED TOMOGRAM ABDOMEN
     Dosage: 370MG OF ^I^/ML, INTRAVENOUS
     Route: 042
     Dates: start: 20050902, end: 20050902
  3. SPASFON (PHLOROGLUCINOL, TRIMETHYLPHLOROGLUCINOL) [Suspect]
     Indication: ILL-DEFINED DISORDER
     Dosage: (4 IN 1 D), INTRAVENOUS
     Route: 042
     Dates: start: 20050901, end: 20050904
  4. OMEPRAZOLE [Suspect]
     Indication: ILL-DEFINED DISORDER
     Dosage: 40 MG (40 MG, 1 IN 1 D), INTRAVENOUS
     Route: 042
     Dates: start: 20050901, end: 20050903
  5. CYPROTERONE ACETATE (CYOROTERONE ACETATE) [Concomitant]
  6. CALCIUM GLUCONATE [Concomitant]

REACTIONS (1)
  - ACUTE GENERALISED EXANTHEMATOUS PUSTULOSIS [None]
